FAERS Safety Report 4524136-X (Version None)
Quarter: 2004Q4

REPORT INFORMATION
  Report Type: 
  Country: None (occurrence: None)
  Receive Date: 20041119
  Receipt Date: 20040727
  Transmission Date: 20050328
  Serious: No
  Sender: FDA-Public Use
  Company Number: PHEH2004US08228

PATIENT
  Sex: Female

DRUGS (3)
  1. ZELNORM [Suspect]
     Dosage: 6 MG/DAY, ORAL
     Route: 048
     Dates: start: 20040725
  2. LEVOXYL [Concomitant]
  3. WELLBUTRIN [Concomitant]

REACTIONS (1)
  - ANXIETY [None]
